FAERS Safety Report 8381684-2 (Version None)
Quarter: 2012Q2

REPORT INFORMATION
  Report Type: 
  Country: None (occurrence: None)
  Receive Date: 20120524
  Receipt Date: 20120521
  Transmission Date: 20120825
  Serious: Yes (Death, Other)
  Sender: FDA-Public Use
  Company Number: US-AMGEN-USASP2012031981

PATIENT
  Age: 85 Year
  Sex: Female

DRUGS (3)
  1. ROXICET [Concomitant]
  2. LANSOPRAZOLE [Concomitant]
     Dosage: UNK
  3. PROLIA [Suspect]
     Indication: OSTEOPOROSIS POSTMENOPAUSAL

REACTIONS (4)
  - PROCEDURAL VOMITING [None]
  - FALL [None]
  - PATELLA FRACTURE [None]
  - PNEUMONIA ASPIRATION [None]
